FAERS Safety Report 11490571 (Version 2)
Quarter: 2017Q1

REPORT INFORMATION
  Report Type: Spontaneous
  Country: US (occurrence: US)
  Receive Date: 20150910
  Receipt Date: 20170209
  Transmission Date: 20170428
  Serious: Yes (Other)
  Sender: FDA-Public Use
  Company Number: US-ELI_LILLY_AND_COMPANY-US201509001419

PATIENT
  Age: 32 Year
  Sex: Female

DRUGS (4)
  1. CYMBALTA [Suspect]
     Active Substance: DULOXETINE HYDROCHLORIDE
     Indication: DEPRESSION
     Dosage: 60 MG, QD SAMPLES
     Route: 048
     Dates: start: 20091228
  2. CYMBALTA [Suspect]
     Active Substance: DULOXETINE HYDROCHLORIDE
     Dosage: 30 MG, EACH EVENING
     Route: 048
     Dates: start: 20100316
  3. CYMBALTA [Suspect]
     Active Substance: DULOXETINE HYDROCHLORIDE
     Dosage: 30 MG, QD SAMPLES
     Route: 048
     Dates: start: 20100331
  4. CYMBALTA [Suspect]
     Active Substance: DULOXETINE HYDROCHLORIDE
     Indication: PAIN
     Dosage: 30 MG, QD SAMPLES
     Route: 048
     Dates: start: 20091201

REACTIONS (27)
  - Drug withdrawal syndrome [Unknown]
  - Headache [Unknown]
  - Nightmare [Unknown]
  - Fatigue [Unknown]
  - Hyperhidrosis [Unknown]
  - Dysphoria [Unknown]
  - Mood swings [Unknown]
  - Affect lability [Unknown]
  - Visual impairment [Unknown]
  - Nausea [Unknown]
  - Vomiting [Unknown]
  - Irritability [Unknown]
  - Agitation [Unknown]
  - Feeling cold [Unknown]
  - Dehydration [Unknown]
  - Off label use [Unknown]
  - Paraesthesia [Unknown]
  - Asthenia [Unknown]
  - Suicidal ideation [Unknown]
  - Dyspnoea [Unknown]
  - Hot flush [Unknown]
  - Weight increased [Unknown]
  - Insomnia [Unknown]
  - Dizziness [Unknown]
  - Vertigo [Unknown]
  - Diarrhoea [Unknown]
  - Anxiety [Unknown]

NARRATIVE: CASE EVENT DATE: 20100217
